FAERS Safety Report 15236810 (Version 5)
Quarter: 2018Q4

REPORT INFORMATION
  Report Type: Spontaneous
  Country: JP (occurrence: JP)
  Receive Date: 20180803
  Receipt Date: 20181219
  Transmission Date: 20190204
  Serious: Yes (Other)
  Sender: FDA-Public Use
  Company Number: JP-PFIZER INC-2018311962

PATIENT
  Age: 76 Year
  Sex: Female
  Weight: 24 kg

DRUGS (13)
  1. ERYTHROMYCIN. [Concomitant]
     Active Substance: ERYTHROMYCIN
     Dosage: UNK
  2. ALFACALCIDOL [Concomitant]
     Active Substance: ALFACALCIDOL
     Dosage: UNK
  3. ITOPRIDE HYDROCHLORIDE [Concomitant]
     Active Substance: ITOPRIDE HYDROCHLORIDE
     Dosage: UNK
  4. MEXILETINE HYDROCHLORIDE. [Concomitant]
     Active Substance: MEXILETINE HYDROCHLORIDE
     Indication: VENTRICULAR EXTRASYSTOLES
     Dosage: UNK
  5. SPIRONOLACTONE. [Concomitant]
     Active Substance: SPIRONOLACTONE
     Indication: CHRONIC GASTRITIS
     Dosage: UNK
  6. ALUMINUM HYDROXIDE GEL [Concomitant]
     Active Substance: ALGELDRATE
     Dosage: UNK
  7. PEMIROLAST POTASSIUM [Concomitant]
     Active Substance: PEMIROLAST POTASSIUM
     Indication: RHINITIS ALLERGIC
     Dosage: UNK
  8. ISOSORBIDE DINITRATE. [Concomitant]
     Active Substance: ISOSORBIDE DINITRATE
     Indication: BRONCHITIS CHRONIC
     Dosage: UNK
  9. DIMETICONE [Concomitant]
     Active Substance: DIMETHICONE
     Dosage: UNK
  10. AMLODIN [Suspect]
     Active Substance: AMLODIPINE BESYLATE
     Indication: HYPERTENSION
     Dosage: UNK
     Route: 048
  11. SODIUM AZULENE SULFONATE L-GLUTAMINE COMB. [Concomitant]
     Dosage: UNK
  12. EPRAZINONE HYDROCHLORIDE [Concomitant]
     Active Substance: EPRAZINONE HYDROCHLORIDE
     Indication: BRONCHITIS CHRONIC
     Dosage: UNK
  13. ETIZOLAM [Concomitant]
     Active Substance: ETIZOLAM
     Indication: OSTEOPOROSIS
     Dosage: UNK

REACTIONS (3)
  - Gastric ulcer [Unknown]
  - Decreased appetite [Unknown]
  - Weight decreased [Unknown]
